FAERS Safety Report 24848983 (Version 1)
Quarter: 2025Q1

REPORT INFORMATION
  Report Type: Spontaneous
  Country: US (occurrence: US)
  Receive Date: 20250116
  Receipt Date: 20250116
  Transmission Date: 20250408
  Serious: No
  Sender: RICONPHARMA LLC
  Company Number: US-RICONPHARMA, LLC-2024RIC000007

PATIENT

DRUGS (3)
  1. SCOPOLAMINE [Suspect]
     Active Substance: SCOPOLAMINE
     Indication: Motion sickness
     Route: 062
  2. LEVOTHYROXINE [Concomitant]
     Active Substance: LEVOTHYROXINE
     Indication: Product used for unknown indication
     Route: 065
  3. PRAVASTATIN [Concomitant]
     Active Substance: PRAVASTATIN
     Indication: Product used for unknown indication
     Route: 065

REACTIONS (4)
  - Motion sickness [Recovered/Resolved]
  - Drug ineffective [Unknown]
  - Product adhesion issue [Unknown]
  - Wrong technique in product usage process [Unknown]
